FAERS Safety Report 13029467 (Version 1)
Quarter: 2016Q4

REPORT INFORMATION
  Report Type: Report from Study
  Country: IN (occurrence: IN)
  Receive Date: 20161215
  Receipt Date: 20161215
  Transmission Date: 20170207
  Serious: Yes (Hospitalization)
  Sender: FDA-Public Use
  Company Number: IN-ACCORD-046489

PATIENT

DRUGS (8)
  1. TACROLIMUS. [Suspect]
     Active Substance: TACROLIMUS
     Indication: RENAL TRANSPLANT
     Dosage: TARGET TROUGH LEVEL WAS 10-12 NG/ML, LATER REDUCED TO 5-8 NG/ML AT 3 MONTHS AND 3-5 NG/ML AT 6 MONTH
  2. MYCOPHENOLIC ACID. [Suspect]
     Active Substance: MYCOPHENOLIC ACID
     Indication: RENAL TRANSPLANT
     Dosage: AFTER 6 MONTHS POST-TRANSPLANTATION, THE MMF DOSE WAS REDUCED TO 1 G/D
  3. ANTITHYMOCYTE IMMUNOGLOBULIN [Concomitant]
     Active Substance: THYMOCYTE IMMUNE GLOBULIN NOS
     Indication: IMMUNOMODULATORY THERAPY
     Dosage: IN 2 DIVIDED DOSES ON DAY 0 AND DAY 1 POST-TRANSPLANTATION
  4. METHYLPREDNISOLONE. [Concomitant]
     Active Substance: METHYLPREDNISOLONE
     Dosage: IN 2 DOSES ON DAY -1 AND DAY 0
  5. RITUXIMAB [Concomitant]
     Active Substance: RITUXIMAB
     Indication: IMMUNOMODULATORY THERAPY
     Dosage: DOSE: ANTI-CD 20, 200 MG
  6. IMMUNOGLOBULIN [Concomitant]
     Active Substance: HUMAN IMMUNOGLOBULIN G
     Indication: IMMUNOMODULATORY THERAPY
     Dosage: TOTAL DOSE OF 10-25 G WAS GIVEN
     Route: 042
  7. HYDROCORTISONE. [Concomitant]
     Active Substance: HYDROCORTISONE
     Indication: PREMEDICATION
  8. PREDNISOLONE. [Suspect]
     Active Substance: PREDNISOLONE
     Indication: RENAL TRANSPLANT
     Dosage: POSTTRANSPLANTATION, THE DOSE WAS 50 MG/D, TAPERED TO 20 MG/D BY THE END OF 1 MONTH.

REACTIONS (2)
  - Acinetobacter infection [Unknown]
  - Sepsis [Unknown]
